FAERS Safety Report 6612188-2 (Version None)
Quarter: 2010Q1

REPORT INFORMATION
  Report Type: 
  Country: None (occurrence: None)
  Receive Date: 20100302
  Receipt Date: 20100302
  Transmission Date: 20100710
  Serious: Yes (Other)
  Sender: FDA-Public Use
  Company Number: None

PATIENT
  Age: 39 Year
  Sex: Female
  Weight: 14.9687 kg

DRUGS (4)
  1. CYMBALTA [Suspect]
     Indication: DEPRESSION
     Dosage: 30 MG 1 PER DAY PO
     Route: 048
     Dates: start: 20091123, end: 20091214
  2. CYMBALTA [Suspect]
     Indication: FIBROMYALGIA
     Dosage: 30 MG 1 PER DAY PO
     Route: 048
     Dates: start: 20091123, end: 20091214
  3. CYMBALTA [Suspect]
     Indication: DEPRESSION
     Dosage: 60 MG 1 PER DAY PO
     Route: 048
     Dates: start: 20091214, end: 20100111
  4. CYMBALTA [Suspect]
     Indication: FIBROMYALGIA
     Dosage: 60 MG 1 PER DAY PO
     Route: 048
     Dates: start: 20091214, end: 20100111

REACTIONS (3)
  - ARTHROPATHY [None]
  - DIARRHOEA [None]
  - INFREQUENT BOWEL MOVEMENTS [None]
